FAERS Safety Report 5627810-7 (Version None)
Quarter: 2008Q1

REPORT INFORMATION
  Report Type: 
  Country: None (occurrence: None)
  Receive Date: 20080215
  Receipt Date: 20080207
  Transmission Date: 20080703
  Serious: Yes (Other)
  Sender: FDA-Public Use
  Company Number: US-JNJFOC-20080202043

PATIENT
  Sex: Female
  Weight: 107.96 kg

DRUGS (10)
  1. REMICADE [Suspect]
     Route: 042
  2. REMICADE [Suspect]
     Route: 042
  3. REMICADE [Suspect]
     Indication: COLITIS ULCERATIVE
     Route: 042
  4. PREDNISONE TAB [Concomitant]
     Indication: PREMEDICATION
  5. PREDNISONE TAB [Concomitant]
     Indication: COLITIS ULCERATIVE
  6. LOMOTIL [Concomitant]
     Indication: COLITIS ULCERATIVE
  7. DONNATOL [Concomitant]
     Indication: COLITIS ULCERATIVE
  8. WELLBUTRIN [Concomitant]
     Indication: DEPRESSION
  9. CLARITIN [Concomitant]
     Indication: PREMEDICATION
  10. APAP TAB [Concomitant]

REACTIONS (4)
  - ABDOMINAL PAIN [None]
  - HYPOAESTHESIA [None]
  - INFUSION RELATED REACTION [None]
  - PARAESTHESIA [None]
